FAERS Safety Report 12775745 (Version 1)
Quarter: 2016Q3

REPORT INFORMATION
  Report Type: Spontaneous
  Country: GB (occurrence: GB)
  Receive Date: 20160923
  Receipt Date: 20160923
  Transmission Date: 20161109
  Serious: Yes (Other)
  Sender: FDA-Public Use
  Company Number: GB-PFIZER INC-2746457

PATIENT
  Age: 60 Year
  Sex: Male
  Weight: 85 kg

DRUGS (9)
  1. RANITIDINE. [Concomitant]
     Active Substance: RANITIDINE
     Dosage: 150 MG, FREQ: 2 DAY; INTERVAL: 1
     Route: 048
  2. CALCIUM FOLINATE [Suspect]
     Active Substance: LEUCOVORIN CALCIUM
     Dosage: OXMDG REGIME
     Dates: start: 20141126
  3. EMEND [Concomitant]
     Active Substance: APREPITANT
     Dosage: 80 MG, FREQ: 1 DAY; INTERVAL: 1
     Route: 048
     Dates: start: 20141128
  4. FLUOROURACIL. [Suspect]
     Active Substance: FLUOROURACIL
     Indication: COLORECTAL CANCER
     Dosage: 640 MG, UNK
     Route: 040
     Dates: start: 20141126
  5. FLUOROURACIL. [Suspect]
     Active Substance: FLUOROURACIL
     Dosage: 5000 MG, UNK
     Route: 042
     Dates: start: 20141222
  6. FLUOROURACIL. [Suspect]
     Active Substance: FLUOROURACIL
     Dosage: 3800 MG, OXMDGREGIME, INLV5PUMP,FREQ: 1 HOUR; INTERVAL: 46
     Route: 042
     Dates: start: 20150113
  7. OXALIPLATIN FRESENIUS KABI [Suspect]
     Active Substance: OXALIPLATIN
     Indication: COLORECTAL CANCER
     Dosage: 135 MG, ONCE; OXMDG REGIME
     Route: 042
     Dates: start: 20141126
  8. BAXTER SALINE [Suspect]
     Active Substance: SODIUM CHLORIDE
     Indication: COLORECTAL CANCER
     Dosage: 100 ML, 0.90%; INFUSED OVER 46 HOURS
     Route: 042
     Dates: start: 20141126
  9. EMEND [Concomitant]
     Active Substance: APREPITANT
     Indication: NAUSEA
     Dosage: 125 MG, ONCE
     Dates: start: 20141126, end: 20141126

REACTIONS (12)
  - Malaise [Not Recovered/Not Resolved]
  - Fatigue [Recovered/Resolved with Sequelae]
  - Device infusion issue [Not Recovered/Not Resolved]
  - Malaise [Recovered/Resolved]
  - Oral pain [Recovered/Resolved]
  - Mood swings [Not Recovered/Not Resolved]
  - Decreased appetite [Recovered/Resolved]
  - Cough [Not Recovered/Not Resolved]
  - Neuropathy peripheral [Not Recovered/Not Resolved]
  - Headache [Recovered/Resolved]
  - Fatigue [Not Recovered/Not Resolved]
  - Incorrect drug administration rate [Recovered/Resolved]

NARRATIVE: CASE EVENT DATE: 20141127
